FAERS Safety Report 4809088-7 (Version None)
Quarter: 2005Q4

REPORT INFORMATION
  Report Type: 
  Country: None (occurrence: None)
  Receive Date: 20051021
  Receipt Date: 20051021
  Transmission Date: 20060501
  Serious: Yes (Hospitalization)
  Sender: FDA-Public Use
  Company Number: None

PATIENT
  Sex: Male
  Weight: 124.2856 kg

DRUGS (7)
  1. ELOXATIN [Suspect]
     Indication: COLON CANCER
     Dosage: 200MG ONCE IV DRIP
     Route: 041
     Dates: start: 20050627, end: 20051020
  2. NOVOLIN [Concomitant]
  3. AVANDIA [Concomitant]
  4. LOPRESSOR [Concomitant]
  5. PROTONIX [Concomitant]
  6. COLACE [Concomitant]
  7. MILK OF MAGNESIA TAB [Concomitant]

REACTIONS (4)
  - CATHETER SITE INFLAMMATION [None]
  - CATHETER SITE OEDEMA [None]
  - CATHETER SITE PAIN [None]
  - CATHETER SITE RELATED REACTION [None]
